FAERS Safety Report 5031525-6 (Version None)
Quarter: 2006Q2

REPORT INFORMATION
  Report Type: 
  Country: None (occurrence: None)
  Receive Date: 20060505
  Receipt Date: 20050419
  Transmission Date: 20061013
  Serious: Yes (Hospitalization)
  Sender: FDA-Public Use
  Company Number: PHEH2005US04577

PATIENT
  Age: 49 Year
  Sex: Female

DRUGS (2)
  1. DIOVAN HCT [Suspect]
     Dosage: QD ORAL
     Route: 048
  2. NORVASC [Concomitant]

REACTIONS (2)
  - BLOOD CREATININE INCREASED [None]
  - OEDEMA [None]
